FAERS Safety Report 14999500 (Version 2)
Quarter: 2018Q3

REPORT INFORMATION
  Report Type: Spontaneous
  Country: GB (occurrence: GB)
  Receive Date: 20180612
  Receipt Date: 20180622
  Transmission Date: 20181010
  Serious: Yes (Other)
  Sender: FDA-Public Use
  Company Number: GB-ACCORD-062035

PATIENT
  Age: 54 Year

DRUGS (5)
  1. ELTROMBOPAG [Suspect]
     Active Substance: ELTROMBOPAG
     Indication: IMMUNE THROMBOCYTOPENIC PURPURA
     Dosage: 50 MG, QD
     Route: 065
  2. PREDNISOLONE. [Suspect]
     Active Substance: PREDNISOLONE
     Indication: PRODUCT USED FOR UNKNOWN INDICATION
     Dosage: 10 MG, QOD ?ALSO RECEIVED AT 60 MG AND 40 MG
     Route: 065
  3. MYCOPHENOLIC ACID. [Suspect]
     Active Substance: MYCOPHENOLIC ACID
     Indication: IMMUNE THROMBOCYTOPENIC PURPURA
     Dosage: 1 G, QD
     Route: 065
  4. RITUXIMAB. [Suspect]
     Active Substance: RITUXIMAB
     Indication: IMMUNE THROMBOCYTOPENIC PURPURA
     Dosage: COMPLETED 4 THERAPIES
     Route: 065
     Dates: end: 20151101
  5. IMMUNOGLOBULIN (IMMUNOGLOBULIN HUMAN NORMAL) [Suspect]
     Active Substance: HUMAN IMMUNOGLOBULIN G
     Indication: IMMUNE THROMBOCYTOPENIC PURPURA
     Dosage: 0.4 UG/KG*5/7
     Route: 065

REACTIONS (5)
  - Contusion [Recovered/Resolved]
  - Blister [Recovered/Resolved]
  - Petechiae [Recovered/Resolved]
  - Off label use [Unknown]
  - Headache [Recovered/Resolved]
